FAERS Safety Report 7791621-7 (Version None)
Quarter: 2011Q3

REPORT INFORMATION
  Report Type: 
  Country: None (occurrence: None)
  Receive Date: 20110930
  Receipt Date: 20110930
  Transmission Date: 20111222
  Serious: Yes (Hospitalization)
  Sender: FDA-Public Use
  Company Number: None

PATIENT
  Sex: Female
  Weight: 107.3 kg

DRUGS (2)
  1. AZATHIPRINE 50MG [Suspect]
     Indication: RENAL TRANSPLANT
     Dosage: 200MG DAILY 047
     Route: 048
  2. ALLOPURINOL [Suspect]
     Indication: GOUT
     Dosage: 100MG DAILY 047
     Route: 048
     Dates: start: 20110601

REACTIONS (5)
  - ASTHENIA [None]
  - HYPERGLYCAEMIA [None]
  - PRESYNCOPE [None]
  - INTERNATIONAL NORMALISED RATIO DECREASED [None]
  - PANCYTOPENIA [None]
